FAERS Safety Report 4571892-0 (Version None)
Quarter: 2005Q1

REPORT INFORMATION
  Report Type: 
  Country: None (occurrence: None)
  Receive Date: 20050202
  Receipt Date: 20050118
  Transmission Date: 20050727
  Serious: Yes (Hospitalization)
  Sender: FDA-Public Use
  Company Number: US-2005-001250

PATIENT
  Age: 42 Year
  Sex: Female
  Weight: 59.9 kg

DRUGS (1)
  1. YASMIN [Suspect]
     Indication: DYSMENORRHOEA
     Dosage: 1 TAB(S), 1X/DAY, ORAL
     Route: 048
     Dates: start: 20031218, end: 20040501

REACTIONS (12)
  - ANAEMIA [None]
  - CERVICITIS [None]
  - DIZZINESS [None]
  - ENDOMETRIAL HYPOPLASIA [None]
  - ENDOMETRIOSIS [None]
  - MENORRHAGIA [None]
  - METRORRHAGIA [None]
  - THERAPY NON-RESPONDER [None]
  - UTERINE LEIOMYOMA [None]
  - UTERINE POLYP [None]
  - VAGINAL HAEMORRHAGE [None]
  - VULVOVAGINAL DRYNESS [None]
